FAERS Safety Report 13413655 (Version 2)
Quarter: 2017Q4

REPORT INFORMATION
  Report Type: Spontaneous
  Country: US (occurrence: US)
  Receive Date: 20170406
  Receipt Date: 20171123
  Transmission Date: 20180320
  Serious: No
  Sender: FDA-Public Use
  Company Number: US-JNJFOC-20170318159

PATIENT
  Sex: Male

DRUGS (4)
  1. RISPERIDONE. [Suspect]
     Active Substance: RISPERIDONE
     Indication: PSYCHOTIC SYMPTOM
     Dosage: IN VARYING DOSE OF 1 MG, 2 MG AND 4 MG IN VARYING FREQUENCY.
     Route: 048
     Dates: start: 20140820, end: 20140903
  2. RISPERIDONE. [Suspect]
     Active Substance: RISPERIDONE
     Indication: BIPOLAR DISORDER
     Dosage: IN VARYING DOSE OF 1 MG, 2 MG AND 4 MG IN VARYING FREQUENCY.
     Route: 048
     Dates: start: 20140820, end: 20140903
  3. RISPERDAL [Suspect]
     Active Substance: RISPERIDONE
     Indication: PSYCHOTIC SYMPTOM
     Route: 048
     Dates: start: 20140820, end: 20140903
  4. RISPERDAL [Suspect]
     Active Substance: RISPERIDONE
     Indication: BIPOLAR DISORDER
     Route: 048
     Dates: start: 20140820, end: 20140903

REACTIONS (2)
  - Emotional disorder [Unknown]
  - Gynaecomastia [Unknown]
